FAERS Safety Report 19429431 (Version 1)
Quarter: 2021Q2

REPORT INFORMATION
  Report Type: Other
  Country: CA (occurrence: CA)
  Receive Date: 20210617
  Receipt Date: 20210617
  Transmission Date: 20210717
  Serious: Yes (Hospitalization, Other)
  Sender: FDA-Public Use
  Company Number: CA-APOTEX-2021AP014152

PATIENT
  Sex: Female

DRUGS (1)
  1. SALBUTAMOL [Suspect]
     Active Substance: ALBUTEROL
     Indication: PRODUCT USED FOR UNKNOWN INDICATION
     Dosage: 3 DOSAGE FORM, QD
     Route: 065

REACTIONS (10)
  - Loss of personal independence in daily activities [Unknown]
  - Wheezing [Unknown]
  - Neutrophil count decreased [Unknown]
  - Asthma [Unknown]
  - Dyspnoea [Unknown]
  - Basophil count increased [Unknown]
  - Eosinophil count increased [Unknown]
  - Sleep disorder due to a general medical condition [Unknown]
  - White blood cell count decreased [Unknown]
  - Therapeutic product effect incomplete [Unknown]
